FAERS Safety Report 25230424 (Version 1)
Quarter: 2025Q2

REPORT INFORMATION
  Report Type: Spontaneous
  Country: NL (occurrence: NL)
  Receive Date: 20250423
  Receipt Date: 20250423
  Transmission Date: 20250717
  Serious: Yes (Hospitalization)
  Sender: ALEXION PHARMACEUTICALS
  Company Number: NL-ASTRAZENECA-202504GLO019322NL

PATIENT
  Age: 54 Year
  Weight: 88 kg

DRUGS (2)
  1. OMEPRAZOLE [Suspect]
     Active Substance: OMEPRAZOLE
     Indication: Sensation of foreign body
     Dosage: 20 MILLIGRAM, QD
  2. OXYCONTIN [Concomitant]
     Active Substance: OXYCODONE HYDROCHLORIDE

REACTIONS (2)
  - Diverticulitis [Recovered/Resolved]
  - Product use in unapproved indication [Recovered/Resolved]
